FAERS Safety Report 4557071-1 (Version None)
Quarter: 2005Q1

REPORT INFORMATION
  Report Type: 
  Country: None (occurrence: None)
  Receive Date: 20050103
  Receipt Date: 20041007
  Transmission Date: 20050727
  Serious: Yes (Other)
  Sender: FDA-Public Use
  Company Number: 2004UW19100

PATIENT
  Age: 82 Year
  Sex: Female
  Weight: 67.1324 kg

DRUGS (3)
  1. CRESTOR [Suspect]
     Indication: BLOOD CHOLESTEROL INCREASED
     Dosage: 5 MG DAILY PO
     Route: 048
     Dates: start: 20040830, end: 20040921
  2. NORVASC [Concomitant]
  3. ASPIRIN [Concomitant]

REACTIONS (3)
  - HYPERSENSITIVITY [None]
  - RHINORRHOEA [None]
  - SNEEZING [None]
